FAERS Safety Report 21299116 (Version 1)
Quarter: 2022Q3

REPORT INFORMATION
  Report Type: Spontaneous
  Country: IT (occurrence: IT)
  Receive Date: 20220906
  Receipt Date: 20220906
  Transmission Date: 20221027
  Serious: Yes (Hospitalization)
  Sender: FDA-Public Use
  Company Number: None

PATIENT
  Age: 52 Year
  Sex: Female

DRUGS (1)
  1. XANAX [Suspect]
     Active Substance: ALPRAZOLAM
     Indication: Intentional self-injury
     Dosage: 10 MG
     Route: 048
     Dates: start: 20220829, end: 20220829

REACTIONS (5)
  - Substance abuse [Recovering/Resolving]
  - Sopor [Recovering/Resolving]
  - Vomiting [Recovering/Resolving]
  - Hypokinesia [Recovering/Resolving]
  - Confusional state [Recovering/Resolving]

NARRATIVE: CASE EVENT DATE: 20220829
